FAERS Safety Report 6415966-8 (Version None)
Quarter: 2009Q4

REPORT INFORMATION
  Report Type: 
  Country: None (occurrence: None)
  Receive Date: 20091027
  Receipt Date: 20091022
  Transmission Date: 20100525
  Serious: Yes (Other)
  Sender: FDA-Public Use
  Company Number: B0599782A

PATIENT
  Age: 59 Year
  Sex: Female
  Weight: 83 kg

DRUGS (9)
  1. CEFUROXIME [Suspect]
     Indication: INFECTION
     Route: 042
     Dates: start: 20090507, end: 20090804
  2. TEICOPLANIN [Suspect]
     Indication: INFECTION
     Route: 042
     Dates: start: 20090507, end: 20090804
  3. LYRICA [Concomitant]
     Indication: BACK PAIN
     Route: 048
  4. GLICLAZIDE [Concomitant]
     Route: 048
  5. OMEPRAZOLE [Concomitant]
     Indication: DYSPEPSIA
     Route: 048
  6. PIOGLITAZONE [Concomitant]
     Route: 048
  7. MS CONTIN [Concomitant]
     Indication: BACK PAIN
     Route: 048
  8. AMITRIPTYLINE [Concomitant]
     Indication: BACK PAIN
     Route: 048
  9. SIMVASTATIN [Concomitant]
     Indication: CARDIOVASCULAR EVENT PROPHYLAXIS
     Route: 048

REACTIONS (3)
  - DIPLOPIA [None]
  - METAMORPHOPSIA [None]
  - RENAL IMPAIRMENT [None]
